FAERS Safety Report 9821584 (Version 1)
Quarter: 2014Q1

REPORT INFORMATION
  Report Type: Spontaneous
  Country: ES (occurrence: ES)
  Receive Date: 20140116
  Receipt Date: 20140116
  Transmission Date: 20141002
  Serious: Yes (Hospitalization)
  Sender: FDA-Public Use
  Company Number: ES-VERTEX PHARMACEUTICALS INC-2014-000194

PATIENT
  Age: 55 Year
  Sex: Male

DRUGS (1)
  1. INCIVO [Suspect]
     Indication: CHRONIC HEPATITIS C
     Dosage: 1125 MG, BID
     Route: 048
     Dates: start: 20131106, end: 20131229

REACTIONS (3)
  - Oedema peripheral [Recovered/Resolved]
  - Rash pustular [Recovered/Resolved]
  - Skin exfoliation [Recovered/Resolved]
